FAERS Safety Report 10956818 (Version 2)
Quarter: 2016Q1

REPORT INFORMATION
  Report Type: Spontaneous
  Country: US (occurrence: US)
  Receive Date: 20150326
  Receipt Date: 20160330
  Transmission Date: 20160525
  Serious: No
  Sender: FDA-Public Use
  Company Number: US-MYLANLABS-2014M1016048

PATIENT
  Sex: Female
  Weight: 77.98 kg

DRUGS (2)
  1. EMSAM [Suspect]
     Active Substance: SELEGILINE
     Indication: DEPRESSION
     Dosage: UNK
     Route: 062
     Dates: start: 2011, end: 2013
  2. MULTIVITAMIN                       /00097801/ [Concomitant]
     Active Substance: VITAMINS
     Dosage: UNK

REACTIONS (1)
  - Application site dermatitis [Recovered/Resolved]

NARRATIVE: CASE EVENT DATE: 2013
